FAERS Safety Report 6488267-X (Version None)
Quarter: 2009Q4

REPORT INFORMATION
  Report Type: 
  Country: None (occurrence: None)
  Receive Date: 20091210
  Receipt Date: 20081216
  Transmission Date: 20100525
  Serious: No
  Sender: FDA-Public Use
  Company Number: US-B.I. PHARMACEUTICALS,INC./RIDGEFIELD-2008-BP-17332BP

PATIENT
  Sex: Male

DRUGS (8)
  1. SPIRIVA [Suspect]
     Indication: EMPHYSEMA
     Dosage: 18 MCG
     Route: 055
     Dates: start: 20040101
  2. OXYGEN [Concomitant]
  3. ALBUTEROL [Concomitant]
  4. FORADIL [Concomitant]
  5. ASPIRIN [Concomitant]
     Indication: THROMBOSIS PROPHYLAXIS
  6. SALINE NASAL GEL [Concomitant]
     Indication: NASAL DISORDER
  7. RED YEAST RICE [Concomitant]
     Indication: BLOOD CHOLESTEROL INCREASED
  8. OMEPRAZOLE [Concomitant]
     Indication: GASTROOESOPHAGEAL REFLUX DISEASE

REACTIONS (5)
  - BLADDER DISORDER [None]
  - CONSTIPATION [None]
  - DYSPNOEA [None]
  - FATIGUE [None]
  - HEART RATE INCREASED [None]
